FAERS Safety Report 20659716 (Version 1)
Quarter: 2022Q1

REPORT INFORMATION
  Report Type: Spontaneous
  Country: TH (occurrence: TH)
  Receive Date: 20220331
  Receipt Date: 20220331
  Transmission Date: 20220423
  Serious: Yes (Other)
  Sender: FDA-Public Use
  Company Number: TH-INSUD PHARMA-2203TH01261

PATIENT

DRUGS (2)
  1. NUVESSA [Suspect]
     Active Substance: METRONIDAZOLE
     Indication: Liver abscess
     Dosage: UNK
     Route: 042
  2. NUVESSA [Suspect]
     Active Substance: METRONIDAZOLE
     Dosage: UNK
     Route: 048

REACTIONS (7)
  - Neurotoxicity [Recovering/Resolving]
  - Cerebellar ataxia [Recovering/Resolving]
  - Gait disturbance [Recovering/Resolving]
  - Dysarthria [Recovering/Resolving]
  - Hypoaesthesia [Recovering/Resolving]
  - Ataxia [Recovering/Resolving]
  - Paraesthesia [Recovering/Resolving]
